FAERS Safety Report 17237943 (Version 1)
Quarter: 2020Q1

REPORT INFORMATION
  Report Type: Spontaneous
  Country: US (occurrence: US)
  Receive Date: 20200106
  Receipt Date: 20200106
  Transmission Date: 20200409
  Serious: Yes (Hospitalization)
  Sender: FDA-Public Use
  Company Number: US-PACIRA-201800043

PATIENT
  Age: 62 Year
  Sex: Male

DRUGS (1)
  1. EXPAREL [Suspect]
     Active Substance: BUPIVACAINE
     Indication: GASTROINTESTINAL SURGERY
     Dosage: UNK, UNK, FREQUENCY : UNK
     Route: 065
     Dates: start: 20181207

REACTIONS (1)
  - Pain [Not Recovered/Not Resolved]
